FAERS Safety Report 7485027-8 (Version None)
Quarter: 2011Q2

REPORT INFORMATION
  Report Type: 
  Country: None (occurrence: None)
  Receive Date: 20110517
  Receipt Date: 20100422
  Transmission Date: 20111010
  Serious: No
  Sender: FDA-Public Use
  Company Number: US-NOVEN-ALL1-2010-02386

PATIENT

DRUGS (2)
  1. DAYTRANA [Suspect]
     Dosage: 20 MG, 1X/DAY:QD
     Route: 062
     Dates: start: 20071101
  2. TENEX [Concomitant]
     Dosage: UNK MG, 1X/DAY:QD
     Route: 048

REACTIONS (3)
  - SLEEP DISORDER [None]
  - DIARRHOEA [None]
  - DECREASED APPETITE [None]
